FAERS Safety Report 8458970-0 (Version None)
Quarter: 2012Q2

REPORT INFORMATION
  Report Type: 
  Country: None (occurrence: None)
  Receive Date: 20120622
  Receipt Date: 20120612
  Transmission Date: 20120825
  Serious: Yes (Life-Threatening, Hospitalization, Other)
  Sender: FDA-Public Use
  Company Number: FR-ROCHE-1071034

PATIENT
  Age: 59 Year
  Sex: Female
  Weight: 50 kg

DRUGS (3)
  1. XELODA [Suspect]
     Indication: COLON CANCER METASTATIC
     Route: 048
     Dates: start: 20120507, end: 20120518
  2. CRESTOR [Concomitant]
     Indication: DYSLIPIDAEMIA
     Route: 048
  3. PROGESTERONE [Concomitant]

REACTIONS (14)
  - PROCTOCOLITIS [None]
  - CHOLESTASIS [None]
  - OVERDOSE [None]
  - HYPOMAGNESAEMIA [None]
  - MUCOSAL INFLAMMATION [None]
  - PANCREATITIS [None]
  - HAEMATOTOXICITY [None]
  - PANCYTOPENIA [None]
  - HYPOKALAEMIA [None]
  - GASTROINTESTINAL INFLAMMATION [None]
  - DIARRHOEA [None]
  - HYPOCALCAEMIA [None]
  - MUCOUS MEMBRANE DISORDER [None]
  - ALOPECIA [None]
